FAERS Safety Report 9412491 (Version 1)
Quarter: 2013Q2

REPORT INFORMATION
  Report Type: Spontaneous
  Country: AU (occurrence: None)
  Receive Date: 20130426
  Receipt Date: 20130426
  Transmission Date: 20140414
  Serious: No
  Sender: FDA-Public Use
  Company Number: ENTC2013-0098

PATIENT
  Sex: Male

DRUGS (5)
  1. STALEVO (LEVODOPA, CARBIDOPA, ENTACAPONE) [Suspect]
     Indication: PARKINSON^S DISEASE
     Route: 048
     Dates: start: 20120620, end: 201303
  2. ALLOPURINOL [Concomitant]
  3. PARACETAMOL [Concomitant]
  4. MAGNESIUM [Concomitant]
  5. QUETIAPINE [Concomitant]

REACTIONS (2)
  - Dysphagia [None]
  - General physical health deterioration [None]
